FAERS Safety Report 8397452-1 (Version None)
Quarter: 2012Q2

REPORT INFORMATION
  Report Type: 
  Country: None (occurrence: None)
  Receive Date: 20120529
  Receipt Date: 20120529
  Transmission Date: 20120825
  Serious: Yes (Other)
  Sender: FDA-Public Use
  Company Number: None

PATIENT
  Age: 49 Year
  Sex: Female
  Weight: 81.6475 kg

DRUGS (1)
  1. INDAPAMIDE [Suspect]
     Indication: JOINT SWELLING
     Dosage: 2.5 MG QDAY PO
     Route: 048
     Dates: start: 20120518, end: 20120525

REACTIONS (1)
  - DRUG HYPERSENSITIVITY [None]
